FAERS Safety Report 8355834-8 (Version None)
Quarter: 2012Q2

REPORT INFORMATION
  Report Type: 
  Country: None (occurrence: None)
  Receive Date: 20120510
  Receipt Date: 20120425
  Transmission Date: 20120825
  Serious: Yes (Hospitalization)
  Sender: FDA-Public Use
  Company Number: 2012AP001202

PATIENT
  Age: 62 Year
  Sex: Male

DRUGS (3)
  1. DILT-CD [Suspect]
     Indication: PRODUCT USED FOR UNKNOWN INDICATION
     Dosage: 240 MG;QD
  2. TACROLIMUS [Suspect]
     Indication: RENAL TRANSPLANT
  3. RANOLAZINE [Suspect]
     Indication: MYOCARDIAL ISCHAEMIA
     Dosage: 500 MG;BID ; 1000 MG;BID

REACTIONS (6)
  - SINUS BRADYCARDIA [None]
  - DECREASED APPETITE [None]
  - TREMOR [None]
  - DRUG INTERACTION [None]
  - FATIGUE [None]
  - RENAL FAILURE ACUTE [None]
